FAERS Safety Report 5947629-7 (Version None)
Quarter: 2008Q4

REPORT INFORMATION
  Report Type: 
  Country: None (occurrence: None)
  Receive Date: 20081107
  Receipt Date: 20081022
  Transmission Date: 20090506
  Serious: Yes (Other)
  Sender: FDA-Public Use
  Company Number: DSA_30531_2007

PATIENT
  Sex: Male
  Weight: 77.5651 kg

DRUGS (6)
  1. PENTOXIFYLLINE [Suspect]
     Indication: PERIPHERAL VASCULAR DISORDER
     Dosage: (400 MG TID ORAL)
     Route: 048
     Dates: start: 19970101
  2. TRENTAL [Suspect]
     Indication: PERIPHERAL VASCULAR DISORDER
     Dosage: (400 MG TID ORAL)
     Route: 048
  3. DILTIAZEM HCL [Concomitant]
  4. NADOLOL [Concomitant]
  5. ASPIRIN [Concomitant]
  6. ATENOLOL [Concomitant]

REACTIONS (14)
  - ABDOMINAL PAIN [None]
  - BACK PAIN [None]
  - BLOOD PRESSURE INCREASED [None]
  - CHEST DISCOMFORT [None]
  - CONDITION AGGRAVATED [None]
  - CONSTIPATION [None]
  - DIZZINESS [None]
  - DRUG EFFECT DECREASED [None]
  - GASTRIC CANCER [None]
  - HEADACHE [None]
  - NAUSEA [None]
  - PAIN IN EXTREMITY [None]
  - PERIPHERAL VASCULAR DISORDER [None]
  - THERAPEUTIC RESPONSE UNEXPECTED WITH DRUG SUBSTITUTION [None]
